FAERS Safety Report 7620618-2 (Version None)
Quarter: 2011Q3

REPORT INFORMATION
  Report Type: 
  Country: None (occurrence: None)
  Receive Date: 20110719
  Receipt Date: 20110711
  Transmission Date: 20111222
  Serious: Yes (Other)
  Sender: FDA-Public Use
  Company Number: VE-ROCHE-789532

PATIENT
  Sex: Female
  Weight: 58.7 kg

DRUGS (6)
  1. XELODA [Suspect]
     Indication: BREAST CANCER
     Dosage: FREQUENCY DAILY
     Route: 048
     Dates: start: 20110501
  2. AVASTIN [Suspect]
     Indication: BREAST CANCER
     Dosage: CYCLIC
     Route: 042
     Dates: start: 20101007
  3. DIOSMINE [Concomitant]
     Dosage: DRUG REOPRTED AS VEDIPAL
  4. DOCETAXEL [Concomitant]
     Indication: BREAST CANCER
     Dosage: CYCLIC
     Route: 042
     Dates: start: 20101007
  5. IBANDRONATE SODIUM [Suspect]
     Dosage: FREQUENCY CYCLIC
     Route: 042
     Dates: start: 20101007
  6. LERCADIP [Concomitant]

REACTIONS (2)
  - PALMAR-PLANTAR ERYTHRODYSAESTHESIA SYNDROME [None]
  - STOMATITIS [None]
